FAERS Safety Report 14839644 (Version 2)
Quarter: 2018Q2

REPORT INFORMATION
  Report Type: Spontaneous
  Country: JP (occurrence: JP)
  Receive Date: 20180502
  Receipt Date: 20180627
  Transmission Date: 20180711
  Serious: Yes (Hospitalization, Other)
  Sender: FDA-Public Use
  Company Number: JP-AMGEN-JPNSP2018044868

PATIENT
  Age: 62 Year
  Sex: Male

DRUGS (3)
  1. KYPROLIS [Suspect]
     Active Substance: CARFILZOMIB
     Indication: PLASMA CELL MYELOMA
     Dosage: 34 MG, UNK
     Route: 041
     Dates: start: 20180219, end: 20180220
  2. DEXAMETHASONE. [Concomitant]
     Active Substance: DEXAMETHASONE
     Dosage: UNK
  3. KYPROLIS [Suspect]
     Active Substance: CARFILZOMIB
     Dosage: 94 MG, UNK
     Route: 041
     Dates: start: 20180226, end: 20180227

REACTIONS (2)
  - Non-cardiogenic pulmonary oedema [Recovered/Resolved]
  - Tumour lysis syndrome [Recovered/Resolved]
